FAERS Safety Report 4285322-X (Version None)
Quarter: 2004Q1

REPORT INFORMATION
  Report Type: 
  Country: None (occurrence: None)
  Receive Date: 20040202
  Receipt Date: 20040120
  Transmission Date: 20041129
  Serious: Yes (Disabling)
  Sender: FDA-Public Use
  Company Number: 203782

PATIENT
  Age: 72 Year
  Sex: Male

DRUGS (1)
  1. METALYSE (TENECTEPLASE) PWDR + SOLVENT, INJECTION SOLN, 50MG [Suspect]
     Indication: ACUTE MYOCARDIAL INFARCTION
     Dosage: IV BOLUS
     Route: 040

REACTIONS (1)
  - BLINDNESS UNILATERAL [None]
